FAERS Safety Report 9190689 (Version 1)
Quarter: 2013Q1

REPORT INFORMATION
  Report Type: Spontaneous
  Country: IT (occurrence: None)
  Receive Date: 20130322
  Receipt Date: 20130322
  Transmission Date: 20140127
  Serious: Yes (Hospitalization)
  Sender: FDA-Public Use
  Company Number: 2013-05244

PATIENT
  Sex: Male

DRUGS (3)
  1. DOXAZOSIN MESYLATE [Suspect]
  2. BISOPROLOL (UNKNOWN) (BISOPROLOL) UNK, UNKUNK [Suspect]
  3. HYDROCHLOROTHIAZIDE [Suspect]

REACTIONS (1)
  - Syncope [None]
